FAERS Safety Report 13833615 (Version 1)
Quarter: 2017Q3

REPORT INFORMATION
  Report Type: Spontaneous
  Country: US (occurrence: US)
  Receive Date: 20170803
  Receipt Date: 20170803
  Transmission Date: 20171127
  Serious: Yes (Other)
  Sender: FDA-Public Use
  Company Number: None

PATIENT
  Age: 62 Year
  Sex: Female

DRUGS (1)
  1. VIEKIRA PAK [Suspect]
     Active Substance: DASABUVIR\OMBITASVIR\PARITAPREVIR\RITONAVIR
     Indication: HEPATITIS C
     Dosage: 3 TABS IN AM 1 TAB PM 2 TIMES A DAY BY MOUTH
     Route: 048
     Dates: start: 20170725

REACTIONS (4)
  - Nausea [None]
  - Insomnia [None]
  - Drug interaction [None]
  - Hangover [None]

NARRATIVE: CASE EVENT DATE: 20170802
